FAERS Safety Report 5047593-1 (Version None)
Quarter: 2006Q3

REPORT INFORMATION
  Report Type: 
  Country: None (occurrence: None)
  Receive Date: 20060711
  Receipt Date: 20050427
  Transmission Date: 20061208
  Serious: Yes (Other)
  Sender: FDA-Public Use
  Company Number: PHNU2005DE01778

PATIENT
  Age: 48 Year
  Sex: Female

DRUGS (4)
  1. TEGRETOL [Concomitant]
     Indication: EPILEPSY
     Route: 048
  2. LAMICTAL [Concomitant]
     Indication: EPILEPSY
     Route: 048
  3. RADIOTHERAPY [Concomitant]
     Route: 065
     Dates: start: 20030101
  4. ZOMETA [Suspect]
     Indication: METASTASES TO BONE
     Dosage: 4 MG, QMO
     Dates: start: 20020101, end: 20050201

REACTIONS (17)
  - ACTINOMYCOSIS [None]
  - BONE DISORDER [None]
  - DENTAL OPERATION [None]
  - EXCESSIVE GRANULATION TISSUE [None]
  - IMPAIRED HEALING [None]
  - MALIGNANT NEOPLASM PROGRESSION [None]
  - MUCOSAL ULCERATION [None]
  - OEDEMA MUCOSAL [None]
  - ORAL SURGERY [None]
  - OSTEOMYELITIS CHRONIC [None]
  - OSTEONECROSIS [None]
  - PAIN IN JAW [None]
  - PURULENT DISCHARGE [None]
  - SECRETION DISCHARGE [None]
  - TOOTH DISORDER [None]
  - TOOTH EXTRACTION [None]
  - WOUND DEBRIDEMENT [None]
